FAERS Safety Report 16514395 (Version 2)
Quarter: 2019Q3

REPORT INFORMATION
  Report Type: Spontaneous
  Country: US (occurrence: US)
  Receive Date: 20190702
  Receipt Date: 20190813
  Transmission Date: 20191004
  Serious: No
  Sender: FDA-Public Use
  Company Number: US-BIOGEN-2019BI00751497

PATIENT
  Age: 37 Year
  Sex: Female

DRUGS (3)
  1. TECFIDERA [Suspect]
     Active Substance: DIMETHYL FUMARATE
     Indication: MULTIPLE SCLEROSIS
     Route: 048
     Dates: start: 20190601, end: 20190607
  2. BIRTH CONTROL [Concomitant]
     Active Substance: UNSPECIFIED INGREDIENT
     Route: 065
  3. TECFIDERA [Suspect]
     Active Substance: DIMETHYL FUMARATE
     Route: 048
     Dates: start: 20190608

REACTIONS (8)
  - Menstruation irregular [Not Recovered/Not Resolved]
  - Abdominal distension [Unknown]
  - Product dose omission [Unknown]
  - Feeling jittery [Unknown]
  - Frequent bowel movements [Recovered/Resolved]
  - Flatulence [Unknown]
  - Multiple sclerosis relapse [Unknown]
  - Somnolence [Unknown]

NARRATIVE: CASE EVENT DATE: 201906
